FAERS Safety Report 5117002-2 (Version None)
Quarter: 2006Q3

REPORT INFORMATION
  Report Type: 
  Country: None (occurrence: None)
  Receive Date: 20060925
  Receipt Date: 20060912
  Transmission Date: 20061208
  Serious: Yes (Other)
  Sender: FDA-Public Use
  Company Number: 2006113046

PATIENT
  Age: 32 Year
  Sex: Male

DRUGS (4)
  1. SOLU-MEDROL [Suspect]
     Indication: RENAL TRANSPLANT
     Dosage: 240 MG (240 MG, 1 IN 1 D), INTRAVENOUS
     Route: 042
     Dates: start: 20060819
  2. SULBACTAM          (SULBACTAM) [Concomitant]
  3. GANCICLOVIR [Concomitant]
  4. MYCOPHENOLATE MOFETIL [Concomitant]

REACTIONS (2)
  - ABDOMINAL DISTENSION [None]
  - KIDNEY TRANSPLANT REJECTION [None]
